FAERS Safety Report 22178278 (Version 1)
Quarter: 2023Q2

REPORT INFORMATION
  Report Type: Spontaneous
  Country: SE (occurrence: SE)
  Receive Date: 20230405
  Receipt Date: 20230405
  Transmission Date: 20230722
  Serious: Yes (Hospitalization)
  Sender: FDA-Public Use
  Company Number: None

PATIENT
  Age: 65 Year
  Sex: Female
  Weight: 76 kg

DRUGS (7)
  1. ZYPADHERA [Suspect]
     Active Substance: OLANZAPINE PAMOATE
     Indication: Bipolar I disorder
     Dosage: 210 MG, OTHER (210 MG EVERY 3 WEEKS / 210MG VAR 3:E VECKA)
     Route: 030
     Dates: start: 20190228, end: 20230315
  2. ZYPADHERA [Suspect]
     Active Substance: OLANZAPINE PAMOATE
     Indication: Bipolar I disorder
     Dosage: 210 MG, OTHER (210 MG EVERY 3 WEEKS / 210MG VAR 3:E VECKA)
     Route: 030
     Dates: start: 20190228, end: 20230315
  3. ZYPADHERA [Suspect]
     Active Substance: OLANZAPINE PAMOATE
     Indication: Bipolar I disorder
     Dosage: 210 MG, OTHER (210 MG EVERY 3 WEEKS / 210MG VAR 3:E VECKA)
     Route: 030
     Dates: start: 20190228, end: 20230315
  4. HALDOL [Concomitant]
     Active Substance: HALOPERIDOL
     Indication: Product used for unknown indication
     Dosage: 2 DOSAGE FORM, UNKNOWN
     Route: 048
     Dates: start: 20150206
  5. ACETYLSALICYLSYRA ACTAVIS [Concomitant]
     Indication: Product used for unknown indication
     Dosage: 75 MG, UNKNOWN (1X1)
     Route: 048
     Dates: start: 20230316
  6. LITHIUM [Concomitant]
     Active Substance: LITHIUM
     Indication: Product used for unknown indication
     Dosage: 1X1
     Route: 048
     Dates: start: 20151216
  7. ZOPICLONE [Concomitant]
     Active Substance: ZOPICLONE
     Indication: Product used for unknown indication
     Dosage: 2 DOSAGE FORM, DAILY (2 TABLETTER X 1/DAG)
     Route: 048
     Dates: start: 20220221

REACTIONS (8)
  - Miosis [Recovered/Resolved]
  - Hemiparesis [Recovered/Resolved]
  - Eyelid disorder [Recovered/Resolved]
  - Depressed level of consciousness [Recovered/Resolved]
  - Depressed level of consciousness [Recovered/Resolved]
  - Heart rate increased [Recovered/Resolved]
  - Urinary incontinence [Recovered/Resolved]
  - Speech disorder [Recovered/Resolved]

NARRATIVE: CASE EVENT DATE: 20230314
